FAERS Safety Report 10195837 (Version 2)
Quarter: 2014Q2

REPORT INFORMATION
  Report Type: Spontaneous
  Country: FR (occurrence: FR)
  Receive Date: 20140527
  Receipt Date: 20140609
  Transmission Date: 20141212
  Serious: Yes (Life-Threatening)
  Sender: FDA-Public Use
  Company Number: FR-ROCHE-1408344

PATIENT
  Age: 67 Year
  Sex: Male

DRUGS (2)
  1. LUCENTIS [Suspect]
     Indication: GLAUCOMA
     Route: 050
     Dates: start: 20081024
  2. OMEPRAZOLE [Concomitant]
     Indication: CHOROID MELANOMA

REACTIONS (2)
  - Metastases to liver [Unknown]
  - Off label use [Unknown]
